FAERS Safety Report 5406759-9 (Version None)
Quarter: 2007Q3

REPORT INFORMATION
  Report Type: 
  Country: None (occurrence: None)
  Receive Date: 20070807
  Receipt Date: 20070730
  Transmission Date: 20080115
  Serious: Yes (Other)
  Sender: FDA-Public Use
  Company Number: PHBS2007JP12869

PATIENT

DRUGS (3)
  1. PARLODEL [Suspect]
     Dosage: 2.5 MG, TID
     Route: 048
  2. SYMMETREL [Suspect]
     Route: 048
  3. SYMMETREL [Suspect]
     Dosage: 2 TABLETS/DAY
     Route: 048

REACTIONS (2)
  - CREATININE RENAL CLEARANCE DECREASED [None]
  - DELIRIUM [None]
